FAERS Safety Report 7214707-4 (Version None)
Quarter: 2011Q1

REPORT INFORMATION
  Report Type: 
  Country: None (occurrence: None)
  Receive Date: 20110107
  Receipt Date: 20091208
  Transmission Date: 20110831
  Serious: No
  Sender: FDA-Public Use
  Company Number: A0834138A

PATIENT
  Age: 66 Year
  Sex: Female

DRUGS (4)
  1. SYNTHROID [Concomitant]
  2. VASOTEC [Concomitant]
  3. LOVAZA [Suspect]
     Dosage: 2CAP TWICE PER DAY
     Route: 048
     Dates: start: 20080801, end: 20090301
  4. MULTI-VITAMIN [Concomitant]

REACTIONS (2)
  - WEIGHT INCREASED [None]
  - DRUG INEFFECTIVE [None]
